FAERS Safety Report 4975194-X (Version None)
Quarter: 2006Q2

REPORT INFORMATION
  Report Type: 
  Country: None (occurrence: None)
  Receive Date: 20060411
  Receipt Date: 20060403
  Transmission Date: 20061013
  Serious: Yes (Life-Threatening, Other)
  Sender: FDA-Public Use
  Company Number: 2006-DE-01747GD

PATIENT
  Age: 69 Year
  Sex: Female
  Weight: 64 kg

DRUGS (11)
  1. MORPHINE [Suspect]
     Indication: GENERAL ANAESTHESIA
     Dosage: 7.5 MG (AS BOLUS)
  2. FENTANYL [Suspect]
     Indication: INDUCTION OF ANAESTHESIA
     Dosage: 100 MCG
  3. DEXMEDETOMIDINE (DEXMEDETOMIDINE) [Suspect]
     Indication: GENERAL ANAESTHESIA
     Dosage: 60 MCG OVER 30 MIN, FOLLOWED BY AN INFUSION OF 0.5 MCG/KG/H
  4. NIFEDIDPINE (NIFEDIPINE) [Concomitant]
  5. ENALAPRIL MALEATE [Concomitant]
  6. PROPOFOL [Concomitant]
  7. ROCURONIUM (ROCURONIUM) [Concomitant]
  8. NITROUS OXIDE W/ OXYGEN [Concomitant]
  9. ISOFLURANE [Concomitant]
  10. ATROPINE [Concomitant]
  11. NEOSTIGMINE (NEOSTIGMINE) [Concomitant]

REACTIONS (5)
  - APNOEA [None]
  - OPERATIVE HAEMORRHAGE [None]
  - OXYGEN SATURATION DECREASED [None]
  - POST PROCEDURAL COMPLICATION [None]
  - UNRESPONSIVE TO VERBAL STIMULI [None]
